FAERS Safety Report 6173403-5 (Version None)
Quarter: 2009Q2

REPORT INFORMATION
  Report Type: 
  Country: None (occurrence: None)
  Receive Date: 20090430
  Receipt Date: 20090421
  Transmission Date: 20091009
  Serious: Yes (Hospitalization)
  Sender: FDA-Public Use
  Company Number: US-WATSON-2009-02759

PATIENT

DRUGS (7)
  1. LOW-OGESTREL (WATSON LABORATORIES) UNKNOWN [Suspect]
     Indication: ORAL CONTRACEPTION
     Dosage: 1 TABLET, DAILY
     Route: 048
     Dates: start: 20090101, end: 20090415
  2. CRYSELLE [Suspect]
     Indication: ORAL CONTRACEPTION
     Dosage: 1 TABLET, DAILY
     Route: 048
     Dates: start: 20090416, end: 20090420
  3. SEROQUEL [Suspect]
     Indication: ANXIETY
     Dosage: 25 MG, SINGLE
     Route: 048
     Dates: start: 20090201, end: 20090201
  4. SEROQUEL [Suspect]
     Indication: DEPRESSION
  5. EFFEXOR XR [Suspect]
     Indication: ANXIETY
     Dosage: 150 MG, SINGLE
     Route: 048
     Dates: start: 20090201, end: 20090201
  6. EFFEXOR XR [Suspect]
     Indication: DEPRESSION
  7. PAXIL [Suspect]
     Indication: DRUG USE FOR UNKNOWN INDICATION
     Dosage: 10 MG, SINGLE
     Route: 048
     Dates: start: 20090331, end: 20090331

REACTIONS (9)
  - ANGER [None]
  - ANXIETY [None]
  - DEPRESSION [None]
  - FATIGUE [None]
  - HEADACHE [None]
  - HYPERHIDROSIS [None]
  - NAUSEA [None]
  - PARANOIA [None]
  - SUICIDAL IDEATION [None]
